FAERS Safety Report 7797878-0 (Version None)
Quarter: 2011Q4

REPORT INFORMATION
  Report Type: 
  Country: None (occurrence: None)
  Receive Date: 20111005
  Receipt Date: 20110930
  Transmission Date: 20120403
  Serious: Yes (Other)
  Sender: FDA-Public Use
  Company Number: US-MERCK-1110USA00461

PATIENT
  Sex: Female

DRUGS (2)
  1. FOSAMAX [Suspect]
     Route: 048
     Dates: start: 20021001, end: 20100401
  2. FOSAMAX [Suspect]
     Route: 048
     Dates: start: 20021001, end: 20100401

REACTIONS (1)
  - FEMUR FRACTURE [None]
